FAERS Safety Report 4575545-4 (Version None)
Quarter: 2005Q1

REPORT INFORMATION
  Report Type: 
  Country: None (occurrence: None)
  Receive Date: 20050209
  Receipt Date: 20030829
  Transmission Date: 20050727
  Serious: Yes (Hospitalization)
  Sender: FDA-Public Use
  Company Number: PHRM2003FR02278

PATIENT
  Age: 6 Month
  Sex: Female

DRUGS (3)
  1. TEGRETOL [Suspect]
     Indication: GRAND MAL CONVULSION
     Dosage: 5 ML, TID
     Route: 048
     Dates: start: 20030519
  2. DIACOMIT [Suspect]
     Indication: GRAND MAL CONVULSION
     Route: 048
     Dates: start: 20030706
  3. CLONAZEPAM [Concomitant]
     Indication: GRAND MAL CONVULSION
     Dosage: UNK, UNK
     Route: 065

REACTIONS (5)
  - DRUG INTERACTION [None]
  - EPILEPSY [None]
  - FEBRILE CONVULSION [None]
  - GENERALISED OEDEMA [None]
  - VIRAL INFECTION [None]
